FAERS Safety Report 4577293-3 (Version None)
Quarter: 2005Q1

REPORT INFORMATION
  Report Type: 
  Country: None (occurrence: None)
  Receive Date: 20050201
  Receipt Date: 20050119
  Transmission Date: 20050727
  Serious: Yes (Hospitalization)
  Sender: FDA-Public Use
  Company Number: THYM-10408

PATIENT
  Age: 61 Year
  Sex: Female
  Weight: 70 kg

DRUGS (4)
  1. THYMOGLOBULIN [Suspect]
     Indication: BONE MARROW TRANSPLANT
     Dosage: 2.5 MG/KG IV
     Route: 042
     Dates: start: 20050118, end: 20050118
  2. FLUDARABINE PHOSPHATE [Concomitant]
  3. BUSULFAN [Concomitant]
  4. SOLU-MEDROL [Concomitant]

REACTIONS (1)
  - RENAL FAILURE ACUTE [None]
